FAERS Safety Report 15484405 (Version 2)
Quarter: 2019Q1

REPORT INFORMATION
  Report Type: Report from Study
  Country: DE (occurrence: DE)
  Receive Date: 20181010
  Receipt Date: 20190205
  Transmission Date: 20190417
  Serious: Yes (Life-Threatening, Hospitalization)
  Sender: FDA-Public Use
  Company Number: DE-CELGENEUS-DEU-20181001743

PATIENT
  Age: 69 Year
  Sex: Female
  Weight: 58.5 kg

DRUGS (4)
  1. EPIRUBICIN [Suspect]
     Active Substance: EPIRUBICIN
     Indication: BREAST CANCER
     Dosage: 145 MILLIGRAM
     Route: 041
     Dates: start: 20180920
  2. ABRAXANE [Suspect]
     Active Substance: PACLITAXEL
     Indication: BREAST CANCER
     Route: 041
     Dates: start: 20180712
  3. CYCLOPHOSPHAMIDE. [Suspect]
     Active Substance: CYCLOPHOSPHAMIDE
     Indication: BREAST CANCER
     Dosage: 966 MILLIGRAM
     Route: 041
     Dates: start: 20180920
  4. LETROZOL [Concomitant]
     Active Substance: LETROZOLE
     Indication: MENOPAUSAL SYMPTOMS
     Dosage: DOSE NOT PROVIDED
     Route: 065

REACTIONS (1)
  - Leukopenia [Recovered/Resolved]

NARRATIVE: CASE EVENT DATE: 20180928
